FAERS Safety Report 6584988-9 (Version None)
Quarter: 2010Q1

REPORT INFORMATION
  Report Type: 
  Country: None (occurrence: None)
  Receive Date: 20100217
  Receipt Date: 20100208
  Transmission Date: 20100710
  Serious: Yes (Hospitalization)
  Sender: FDA-Public Use
  Company Number: FR-ASTRAZENECA-2010SE06120

PATIENT
  Age: 24996 Day
  Sex: Female

DRUGS (5)
  1. NEXIUM [Suspect]
     Route: 048
     Dates: start: 20091109, end: 20091112
  2. LYRICA [Suspect]
     Indication: BACK PAIN
     Route: 048
     Dates: start: 20091015, end: 20091112
  3. IXPRIM [Suspect]
     Route: 048
     Dates: start: 20091109, end: 20091112
  4. MYOLASTAN [Suspect]
     Route: 048
     Dates: start: 20091109, end: 20091112
  5. FLUDEX [Concomitant]
     Indication: HYPERTENSION
     Route: 048

REACTIONS (7)
  - EOSINOPHILIA [None]
  - ERYTHEMA [None]
  - GAMMA-GLUTAMYLTRANSFERASE INCREASED [None]
  - OEDEMA [None]
  - PRURITUS [None]
  - PYREXIA [None]
  - RASH PAPULAR [None]
